FAERS Safety Report 15269587 (Version 1)
Quarter: 2018Q3

REPORT INFORMATION
  Report Type: Spontaneous
  Country: NL (occurrence: NL)
  Receive Date: 20180813
  Receipt Date: 20180813
  Transmission Date: 20181010
  Serious: Yes (Hospitalization, Other)
  Sender: FDA-Public Use
  Company Number: NL-MERCK KGAA-2053597

PATIENT
  Age: 57 Year
  Sex: Female

DRUGS (5)
  1. XARELTO [Suspect]
     Active Substance: RIVAROXABAN
     Route: 065
  2. NOVOTHYROX [Suspect]
     Active Substance: LEVOTHYROXINE SODIUM
     Indication: HYPOTHYROIDISM
     Route: 065
  3. CONCOR [Suspect]
     Active Substance: BISOPROLOL FUMARATE
     Route: 065
  4. LEVOTHYROXINE TEVA [Suspect]
     Active Substance: LEVOTHYROXINE
     Route: 065
  5. THYRAX DUO [Suspect]
     Active Substance: LEVOTHYROXINE SODIUM
     Route: 065

REACTIONS (9)
  - Product supply issue [Unknown]
  - Atrial fibrillation [Recovered/Resolved]
  - Insomnia [Recovered/Resolved]
  - Impaired work ability [Unknown]
  - Anxiety [Unknown]
  - Atrial fibrillation [Recovered/Resolved]
  - Atrial fibrillation [Recovered/Resolved]
  - Restlessness [Recovered/Resolved]
  - Product substitution issue [Unknown]

NARRATIVE: CASE EVENT DATE: 20160531
